FAERS Safety Report 10440452 (Version 3)
Quarter: 2015Q2

REPORT INFORMATION
  Report Type: Spontaneous
  Country: NL (occurrence: NL)
  Receive Date: 20140909
  Receipt Date: 20150403
  Transmission Date: 20150821
  Serious: Yes (Death, Hospitalization)
  Sender: FDA-Public Use
  Company Number: NL-BIOGENIDEC-2014BI090572

PATIENT
  Age: 17 Year
  Sex: Male

DRUGS (4)
  1. CARBAMAZEPINE. [Concomitant]
     Active Substance: CARBAMAZEPINE
     Indication: SUBACUTE SCLEROSING PANENCEPHALITIS
  2. MORPHINE [Concomitant]
     Active Substance: MORPHINE
  3. AVONEX [Suspect]
     Active Substance: INTERFERON BETA-1A
     Indication: SUBACUTE SCLEROSING PANENCEPHALITIS
     Route: 030
     Dates: start: 20140723, end: 20140730
  4. ISOPRINOSINE [Concomitant]
     Active Substance: INOSINE PRANOBEX
     Indication: SUBACUTE SCLEROSING PANENCEPHALITIS

REACTIONS (2)
  - Subacute sclerosing panencephalitis [Fatal]
  - Product use issue [Recovered/Resolved]

NARRATIVE: CASE EVENT DATE: 2014
